FAERS Safety Report 21713488 (Version 2)
Quarter: 2022Q4

REPORT INFORMATION
  Report Type: Report from Study
  Country: CA (occurrence: CA)
  Receive Date: 20221212
  Receipt Date: 20221213
  Transmission Date: 20230112
  Serious: Yes (Hospitalization)
  Sender: FDA-Public Use
  Company Number: CA-AstraZeneca-2022A392401

PATIENT
  Sex: Female

DRUGS (11)
  1. ENHERTU [Suspect]
     Active Substance: FAM-TRASTUZUMAB DERUXTECAN-NXKI
     Indication: HER2 positive breast cancer
     Dosage: 367 MG, ONCE EVERY 3 WK
     Route: 042
     Dates: start: 20221011
  2. ASPIRIN [Concomitant]
     Active Substance: ASPIRIN
  3. BISOPROLOL FUMARATE [Concomitant]
     Active Substance: BISOPROLOL FUMARATE
  4. PERINDOPRIL [Concomitant]
     Active Substance: PERINDOPRIL
     Dosage: 8.5MG PLUS 2.5MG
  5. DOMPERIDONE [Concomitant]
     Active Substance: DOMPERIDONE
     Dosage: 5 ML
  6. DOXAZOSIN MESYLATE [Concomitant]
     Active Substance: DOXAZOSIN MESYLATE
     Dosage: 2MH
  7. LANTUS [Concomitant]
     Active Substance: INSULIN GLARGINE
  8. LORAZEPAM [Concomitant]
     Active Substance: LORAZEPAM
     Dosage: PRN
  9. METFORMIN [Concomitant]
     Active Substance: METFORMIN HYDROCHLORIDE
     Dosage: 500 MG
  10. ONDANSETRON [Concomitant]
     Active Substance: ONDANSETRON
     Dosage: 8 ML
  11. PAN [Concomitant]

REACTIONS (6)
  - Bacterial infection [Unknown]
  - Gastroenteritis listeria [Unknown]
  - Infection [Unknown]
  - Haematological infection [Unknown]
  - Immunosuppression [Unknown]
  - Product dose omission issue [Unknown]

NARRATIVE: CASE EVENT DATE: 20220101
